FAERS Safety Report 10732139 (Version 1)
Quarter: 2015Q1

REPORT INFORMATION
  Report Type: Spontaneous
  Country: US (occurrence: None)
  Receive Date: 20150120
  Receipt Date: 20150120
  Transmission Date: 20150721
  Serious: Yes (Death)
  Sender: FDA-Public Use
  Company Number: 2015010079

PATIENT
  Age: 59 Year
  Sex: Female

DRUGS (4)
  1. COCAINE (COCAINE) [Suspect]
     Active Substance: COCAINE
  2. FENTANYL. [Suspect]
     Active Substance: FENTANYL
  3. FENTANYL TRANSDERMAL [Suspect]
     Active Substance: FENTANYL
  4. NAPROXEN (NAPROXEN) [Suspect]
     Active Substance: NAPROXEN

REACTIONS (2)
  - Cardiac arrest [None]
  - Respiratory arrest [None]

NARRATIVE: CASE EVENT DATE: 2013
